FAERS Safety Report 24683890 (Version 1)
Quarter: 2024Q4

REPORT INFORMATION
  Report Type: Spontaneous
  Country: DE (occurrence: DE)
  Receive Date: 20241202
  Receipt Date: 20241202
  Transmission Date: 20250115
  Serious: Yes (Other)
  Sender: JOHNSON AND JOHNSON
  Company Number: None

PATIENT
  Age: 40 Year
  Sex: Male
  Weight: 98 kg

DRUGS (2)
  1. RISPERDAL [Suspect]
     Active Substance: RISPERIDONE
     Indication: Delusional perception
     Dosage: AB 24.10.24: 1MG/D, AB 04.11.24: 1,5MG/D
     Route: 048
     Dates: start: 20241024, end: 20241105
  2. RISPERDAL [Suspect]
     Active Substance: RISPERIDONE
     Indication: Delusional disorder, persecutory type

REACTIONS (8)
  - Gamma-glutamyltransferase increased [Recovering/Resolving]
  - Electrocardiogram T wave inversion [Unknown]
  - Dysuria [Recovered/Resolved]
  - Alanine aminotransferase increased [Recovering/Resolving]
  - Aspartate aminotransferase increased [Recovering/Resolving]
  - Pyrexia [Recovered/Resolved]
  - General physical health deterioration [Recovered/Resolved]
  - Hyperprolactinaemia [Recovering/Resolving]

NARRATIVE: CASE EVENT DATE: 20241029
